FAERS Safety Report 7851029-2 (Version None)
Quarter: 2011Q4

REPORT INFORMATION
  Report Type: 
  Country: None (occurrence: None)
  Receive Date: 20111026
  Receipt Date: 20111020
  Transmission Date: 20120403
  Serious: Yes (Hospitalization)
  Sender: FDA-Public Use
  Company Number: NO-SANOFI-AVENTIS-2011SA069492

PATIENT
  Age: 38 Year
  Sex: Female

DRUGS (1)
  1. ENOXAPARIN SODIUM [Suspect]
     Route: 058
     Dates: start: 20100701, end: 20110401

REACTIONS (3)
  - OSTEOPOROTIC FRACTURE [None]
  - MATERNAL EXPOSURE DURING PREGNANCY [None]
  - OSTEOPOROSIS [None]
